FAERS Safety Report 23855718 (Version 1)
Quarter: 2024Q2

REPORT INFORMATION
  Report Type: Report from Study
  Country: US (occurrence: US)
  Receive Date: 20240514
  Receipt Date: 20240514
  Transmission Date: 20240716
  Serious: Yes (Other)
  Sender: FDA-Public Use
  Company Number: US-ABBVIE-5702240

PATIENT
  Sex: Female

DRUGS (1)
  1. SKYRIZI [Suspect]
     Active Substance: RISANKIZUMAB-RZAA
     Indication: Psoriatic arthropathy
     Route: 058
     Dates: start: 20230809

REACTIONS (14)
  - Precancerous condition [Unknown]
  - Rash [Not Recovered/Not Resolved]
  - Carpal tunnel syndrome [Not Recovered/Not Resolved]
  - Arthritis [Not Recovered/Not Resolved]
  - Headache [Unknown]
  - Neuropathy peripheral [Not Recovered/Not Resolved]
  - Hypotension [Not Recovered/Not Resolved]
  - Osteoarthritis [Unknown]
  - Rheumatoid arthritis [Unknown]
  - Pruritus [Unknown]
  - Skin exfoliation [Unknown]
  - Migraine [Unknown]
  - Fatigue [Unknown]
  - Peripheral swelling [Unknown]
